FAERS Safety Report 23323257 (Version 1)
Quarter: 2023Q4

REPORT INFORMATION
  Report Type: Other
  Country: US (occurrence: None)
  Receive Date: 20231220
  Receipt Date: 20231220
  Transmission Date: 20240110
  Serious: Yes (Hospitalization)
  Sender: FDA-Public Use
  Company Number: US-ROCHE-3319327

PATIENT
  Age: 54 Year
  Sex: Male

DRUGS (7)
  1. RITUXIMAB [Suspect]
     Active Substance: RITUXIMAB
     Indication: Multiple sclerosis
     Route: 042
  2. COLCHICINE [Concomitant]
     Active Substance: COLCHICINE
  3. SULFAMETHOXAZOLE\TRIMETHOPRIM [Concomitant]
     Active Substance: SULFAMETHOXAZOLE\TRIMETHOPRIM
  4. LEVOFLOXACIN [Concomitant]
     Active Substance: LEVOFLOXACIN
  5. VANCOMYCIN [Concomitant]
     Active Substance: VANCOMYCIN
  6. ERTAPENEM [Concomitant]
     Active Substance: ERTAPENEM
  7. DAPTOMYCIN [Concomitant]
     Active Substance: DAPTOMYCIN

REACTIONS (2)
  - Ureaplasma infection [Recovered/Resolved]
  - Disease progression [Unknown]
